FAERS Safety Report 24628558 (Version 2)
Quarter: 2024Q4

REPORT INFORMATION
  Report Type: Report from Study
  Country: BE (occurrence: BE)
  Receive Date: 20241117
  Receipt Date: 20241207
  Transmission Date: 20250114
  Serious: Yes (Other)
  Sender: ABBVIE
  Company Number: LU-ABBVIE-6002731

PATIENT
  Sex: Male

DRUGS (1)
  1. SKYRIZI [Suspect]
     Active Substance: RISANKIZUMAB-RZAA
     Indication: Psoriasis
     Route: 058
     Dates: start: 202309

REACTIONS (4)
  - Peripheral artery occlusion [Unknown]
  - Muscle rupture [Unknown]
  - Illness [Unknown]
  - Joint swelling [Unknown]
